FAERS Safety Report 10210382 (Version 2)
Quarter: 2014Q2

REPORT INFORMATION
  Report Type: Report from Study
  Country: US (occurrence: US)
  Receive Date: 20140602
  Receipt Date: 20140606
  Transmission Date: 20141212
  Serious: Yes (Death, Hospitalization)
  Sender: FDA-Public Use
  Company Number: US-ALEXION PHARMACEUTICALS INC.-A201402046

PATIENT
  Sex: 0

DRUGS (1)
  1. SOLIRIS [Suspect]
     Indication: HAEMOLYTIC URAEMIC SYNDROME
     Dosage: 600 MG, QW
     Route: 042
     Dates: start: 20140517

REACTIONS (7)
  - Death [Fatal]
  - Blood potassium increased [Unknown]
  - Blood creatinine increased [Unknown]
  - Retinal detachment [Unknown]
  - Brain oedema [Unknown]
  - Cardio-respiratory arrest [Unknown]
  - Hypertension [Unknown]
